FAERS Safety Report 7480719-9 (Version None)
Quarter: 2011Q2

REPORT INFORMATION
  Report Type: 
  Country: None (occurrence: None)
  Receive Date: 20110512
  Receipt Date: 20110512
  Transmission Date: 20111010
  Serious: Yes (Hospitalization)
  Sender: FDA-Public Use
  Company Number: None

PATIENT
  Sex: Female
  Weight: 65.8 kg

DRUGS (9)
  1. SIMVASTATIN [Concomitant]
  2. FLECAINADE [Concomitant]
  3. DILTIAZEM [Concomitant]
  4. TEMAZ [Concomitant]
  5. COZAAR [Concomitant]
  6. DABIGATRAN 150 [Suspect]
     Indication: ATRIAL FIBRILLATION
     Dosage: 150 BID PO
     Route: 048
     Dates: start: 20100705, end: 20110428
  7. DABIGATRAN 150 [Suspect]
     Indication: ATRIAL FIBRILLATION
     Dosage: 150 BID PO
     Route: 048
     Dates: start: 20110503, end: 20110507
  8. OMEPRAZOLE [Concomitant]
  9. CENTRUM SILVER [Concomitant]

REACTIONS (3)
  - ABDOMINAL PAIN UPPER [None]
  - HAEMATOCHEZIA [None]
  - VOMITING [None]
